FAERS Safety Report 7816845 (Version 5)
Quarter: 2013Q3

REPORT INFORMATION
  Report Type: Spontaneous
  Country: US (occurrence: US)
  Receive Date: 20110217
  Receipt Date: 20130705
  Transmission Date: 20140515
  Serious: Yes (Other)
  Sender: FDA-Public Use
  Company Number: US-JNJFOC-20110205202

PATIENT
  Age: 58 Year
  Sex: Female

DRUGS (8)
  1. LEVAQUIN [Suspect]
     Indication: INTESTINAL ISCHAEMIA
     Route: 042
  2. LEVAQUIN [Suspect]
     Indication: INTESTINAL ISCHAEMIA
     Route: 048
  3. DIOVAN HCT [Concomitant]
     Indication: HYPERTENSION
     Route: 065
     Dates: start: 2006, end: 2010
  4. LIPITOR [Concomitant]
     Indication: BLOOD CHOLESTEROL INCREASED
     Route: 065
     Dates: start: 2004, end: 2009
  5. AMLODIPINE [Concomitant]
     Indication: HYPERTENSION
     Route: 065
     Dates: start: 2006, end: 2010
  6. ZOLOFT [Concomitant]
     Indication: DEPRESSION
     Route: 065
     Dates: start: 1997, end: 2009
  7. PRILOSEC [Concomitant]
     Indication: GASTROOESOPHAGEAL REFLUX DISEASE
     Route: 065
     Dates: start: 1998, end: 2010
  8. SYNTHROID [Concomitant]
     Indication: HYPOTHYROIDISM
     Route: 065
     Dates: start: 1990

REACTIONS (3)
  - Rotator cuff syndrome [Recovering/Resolving]
  - Joint injury [Recovering/Resolving]
  - Rotator cuff syndrome [Recovering/Resolving]
